FAERS Safety Report 13139927 (Version 2)
Quarter: 2017Q1

REPORT INFORMATION
  Report Type: Report from Study
  Country: KR (occurrence: KR)
  Receive Date: 20170123
  Receipt Date: 20170203
  Transmission Date: 20170428
  Serious: Yes (Hospitalization)
  Sender: FDA-Public Use
  Company Number: KR-ASTRAZENECA-2017SE06275

PATIENT
  Age: 660 Month
  Sex: Female

DRUGS (8)
  1. NAXEN [Concomitant]
     Indication: BACK PAIN
     Route: 065
     Dates: start: 20161108
  2. TAGRISSO [Suspect]
     Active Substance: OSIMERTINIB
     Indication: LUNG ADENOCARCINOMA
     Route: 048
     Dates: start: 20161122
  3. DUPHALAC [Concomitant]
     Active Substance: LACTULOSE
     Indication: CONSTIPATION
     Route: 065
     Dates: start: 20160822
  4. CETRAXAL PLUS [Concomitant]
     Indication: EAR INFECTION
     Route: 065
     Dates: start: 20160509
  5. VESICLE [Concomitant]
     Indication: NOCTURIA
     Route: 065
     Dates: start: 20161111
  6. CRAVIT OPH [Concomitant]
     Indication: LACRIMATION INCREASED
     Route: 065
     Dates: start: 20161124
  7. MEGACE F SUSP [Concomitant]
     Indication: DECREASED APPETITE
     Route: 065
     Dates: start: 20150902
  8. TARGIN [Concomitant]
     Active Substance: NALOXONE HYDROCHLORIDE\OXYCODONE HYDROCHLORIDE
     Indication: HEADACHE
     Route: 065
     Dates: start: 20161104

REACTIONS (1)
  - Facial paralysis [Recovered/Resolved]

NARRATIVE: CASE EVENT DATE: 20170112
